FAERS Safety Report 4376938-0 (Version None)
Quarter: 2004Q2

REPORT INFORMATION
  Report Type: 
  Country: None (occurrence: None)
  Receive Date: 20040608
  Receipt Date: 20040519
  Transmission Date: 20050107
  Serious: Yes (Hospitalization)
  Sender: FDA-Public Use
  Company Number: CERZ-10398

PATIENT
  Age: 54 Year
  Sex: Male

DRUGS (4)
  1. CEREZYME [Suspect]
     Indication: GAUCHER'S DISEASE
     Dosage: 60 U/KG Q2WKS IV
     Route: 042
     Dates: start: 19970205
  2. ALDACTONE [Concomitant]
  3. HYPERIUM [Concomitant]
  4. AMLOR [Concomitant]

REACTIONS (9)
  - ARTERIAL RUPTURE [None]
  - CHOLECYSTITIS [None]
  - GALLBLADDER CANCER [None]
  - HAEMOGLOBIN DECREASED [None]
  - HEPATIC STEATOSIS [None]
  - INTRA-ABDOMINAL HAEMORRHAGE [None]
  - METASTASES TO LIVER [None]
  - METASTASES TO LYMPH NODES [None]
  - RECTAL HAEMORRHAGE [None]
